FAERS Safety Report 7702168-8 (Version None)
Quarter: 2011Q3

REPORT INFORMATION
  Report Type: 
  Country: None (occurrence: None)
  Receive Date: 20110822
  Receipt Date: 20110808
  Transmission Date: 20111222
  Serious: Yes (Other)
  Sender: FDA-Public Use
  Company Number: US-CELGENEUS-163-21880-11081091

PATIENT
  Sex: Female

DRUGS (10)
  1. REVLIMID [Suspect]
     Indication: MULTIPLE MYELOMA
     Dosage: 10 MILLIGRAM
     Route: 048
     Dates: start: 20110209
  2. DEXAMETHASONE [Concomitant]
     Dosage: 4 MILLIGRAM
     Route: 048
     Dates: start: 20110214
  3. REVLIMID [Suspect]
     Dosage: 10 MILLIGRAM
     Route: 048
     Dates: start: 20110322
  4. SALSALATE [Concomitant]
     Dosage: 1 TABLET
     Route: 065
     Dates: start: 20110101
  5. LIDODERM [Concomitant]
     Dosage: 5 PERCENT
     Route: 061
     Dates: start: 20110101
  6. FISH OIL [Concomitant]
     Dosage: 325 MILLIGRAM
     Route: 048
     Dates: start: 20080101
  7. REVLIMID [Suspect]
     Dosage: 25 MILLIGRAM
     Route: 048
     Dates: start: 20110214
  8. DIOVAN [Concomitant]
     Dosage: 150 MILLIGRAM
     Route: 065
  9. HYDROCODONE [Concomitant]
     Dosage: 5/500
     Route: 065
     Dates: start: 20110101
  10. ASPIRIN [Concomitant]
     Dosage: 325 MILLIGRAM
     Route: 061
     Dates: start: 20090101

REACTIONS (4)
  - VOMITING [None]
  - HEADACHE [None]
  - COLONIC POLYP [None]
  - INTESTINAL MASS [None]
